FAERS Safety Report 25171044 (Version 10)
Quarter: 2025Q4

REPORT INFORMATION
  Report Type: Report from Study
  Country: US (occurrence: US)
  Receive Date: 20250408
  Receipt Date: 20251126
  Transmission Date: 20260117
  Serious: Yes (Hospitalization, Other)
  Sender: DECIPHERA PHARMACEUTICALS
  Company Number: US-DECIPHERA PHARMACEUTICALS LLC-2025US000260

PATIENT
  Age: 59 Year
  Sex: Female

DRUGS (3)
  1. ROMVIMZA [Suspect]
     Active Substance: VIMSELTINIB
     Indication: Connective tissue neoplasm
     Dosage: 30 MILLIGRAM, TWICE WEEKLY
     Dates: start: 20250313, end: 202503
  2. ROMVIMZA [Suspect]
     Active Substance: VIMSELTINIB
     Indication: Soft tissue neoplasm
     Dosage: 30 MILLIGRAM, TWICE WEEKLY
     Dates: start: 20250317, end: 2025
  3. ROMVIMZA [Suspect]
     Active Substance: VIMSELTINIB
     Dosage: 30 MILLIGRAM, TWICE WEEKLY (ATLEAST 3 DAYS BETWEEN DOSES)
     Dates: start: 20250317

REACTIONS (25)
  - Fungal infection [Unknown]
  - Cystitis [Unknown]
  - Neuropathy peripheral [Unknown]
  - Headache [Not Recovered/Not Resolved]
  - Dizziness [Unknown]
  - Nausea [Unknown]
  - Swelling [Unknown]
  - Increased appetite [Unknown]
  - Illness [Unknown]
  - Constipation [Unknown]
  - Weight increased [Not Recovered/Not Resolved]
  - Glossodynia [Unknown]
  - Swelling face [Not Recovered/Not Resolved]
  - Periorbital swelling [Unknown]
  - Oral pain [Unknown]
  - Toothache [Unknown]
  - Pain in extremity [Not Recovered/Not Resolved]
  - Dyspnoea [Not Recovered/Not Resolved]
  - Skin indentation [Unknown]
  - Secretion discharge [Unknown]
  - Dysphonia [Unknown]
  - Cough [Unknown]
  - Fatigue [Unknown]
  - Pruritus [Unknown]
  - Rash [Unknown]

NARRATIVE: CASE EVENT DATE: 20250101
